FAERS Safety Report 9246330 (Version 5)
Quarter: 2013Q2

REPORT INFORMATION
  Report Type: Spontaneous
  Country: US (occurrence: US)
  Receive Date: 20130422
  Receipt Date: 20130604
  Transmission Date: 20140414
  Serious: Yes (Death, Hospitalization)
  Sender: FDA-Public Use
  Company Number: US-GILEAD-2013-0071891

PATIENT
  Sex: Male

DRUGS (4)
  1. LETAIRIS [Suspect]
     Indication: PULMONARY ARTERIAL HYPERTENSION
     Dosage: 5 MG, QD
     Route: 048
     Dates: start: 20101223, end: 20130506
  2. TYVASO [Concomitant]
  3. COUMADIN                           /00014802/ [Concomitant]
  4. REMODULIN [Concomitant]

REACTIONS (4)
  - Death [Fatal]
  - Cardiac failure congestive [Unknown]
  - Oedema [Unknown]
  - Oedema peripheral [Unknown]
